FAERS Safety Report 5068328-2 (Version None)
Quarter: 2006Q3

REPORT INFORMATION
  Report Type: 
  Country: None (occurrence: None)
  Receive Date: 20060802
  Receipt Date: 20050804
  Transmission Date: 20061208
  Serious: Yes (Other)
  Sender: FDA-Public Use
  Company Number: US-BRISTOL-MYERS SQUIBB COMPANY-13062724

PATIENT
  Age: 62 Year
  Sex: Female
  Weight: 82 kg

DRUGS (8)
  1. COUMADIN [Suspect]
     Indication: AORTIC VALVE REPLACEMENT
     Dosage: JUL-05: STOPPED FOR SEVERAL DAYS; RESTART 5MG QD UNTIL 01-AUG-05, THEN 7.5MG QD
     Dates: start: 20020701
  2. PAXIL [Concomitant]
  3. DITROPAN XL [Concomitant]
  4. NORVASC [Concomitant]
  5. TOPROL-XL [Concomitant]
  6. LIPITOR [Concomitant]
  7. MOBIC [Concomitant]
     Indication: BACK PAIN
  8. ACETAMINOPHEN [Concomitant]
     Dosage: 650 MG, 2 TABLETS TID

REACTIONS (2)
  - HAEMORRHAGE [None]
  - INTERNATIONAL NORMALISED RATIO ABNORMAL [None]
